FAERS Safety Report 21811140 (Version 1)
Quarter: 2022Q4

REPORT INFORMATION
  Report Type: Spontaneous
  Country: US (occurrence: None)
  Receive Date: 20221230
  Receipt Date: 20221230
  Transmission Date: 20230112
  Serious: No
  Sender: FDA-Public Use
  Company Number: None

PATIENT
  Age: 71 Year
  Sex: Male

DRUGS (1)
  1. LENALIDOMIDE [Suspect]
     Active Substance: LENALIDOMIDE
     Indication: Plasma cell myeloma
     Dosage: 25MG QD  ORAL?
     Route: 048
     Dates: start: 20211018

REACTIONS (2)
  - Urine output decreased [None]
  - Urinary retention [None]

NARRATIVE: CASE EVENT DATE: 20221217
